FAERS Safety Report 10395800 (Version 1)
Quarter: 2014Q1

REPORT INFORMATION
  Report Type: Spontaneous
  Country: US (occurrence: None)
  Receive Date: 20130507
  Receipt Date: 20130507
  Transmission Date: 20141002
  Serious: No
  Sender: FDA-Public Use
  Company Number: PHEH2012US023001

PATIENT
  Sex: Male

DRUGS (2)
  1. AFINITOR (RAD) UNKNOWN [Suspect]
  2. SANDOSTATIN LAR (OCTREOTIDE ACETATE) [Concomitant]

REACTIONS (3)
  - Diarrhoea [None]
  - Blood chromogranin A increased [None]
  - Weight fluctuation [None]
